FAERS Safety Report 4570602-0 (Version None)
Quarter: 2005Q1

REPORT INFORMATION
  Report Type: 
  Country: None (occurrence: None)
  Receive Date: 20050204
  Receipt Date: 20031213
  Transmission Date: 20050727
  Serious: Yes (Hospitalization)
  Sender: FDA-Public Use
  Company Number: JP-GLAXOSMITHKLINE-B0364185A

PATIENT
  Age: 52 Year
  Sex: Male

DRUGS (4)
  1. ZANTAC [Suspect]
     Indication: BACTERIAL INFECTION
     Dosage: 150MG TWICE PER DAY
     Route: 048
     Dates: start: 20031029, end: 20031104
  2. COLIOPAN [Suspect]
     Indication: ABDOMINAL PAIN
     Dosage: 15MG THREE TIMES PER DAY
     Route: 048
     Dates: start: 20031029, end: 20031104
  3. RANSAPP [Concomitant]
     Indication: HELICOBACTER INFECTION
     Dosage: 200MG TWICE PER DAY
     Route: 048
     Dates: start: 20031016, end: 20031022
  4. BIOFERMIN [Concomitant]
     Indication: DIARRHOEA
     Dosage: 1G THREE TIMES PER DAY
     Route: 048
     Dates: start: 20031029, end: 20031104

REACTIONS (5)
  - ERYTHEMA MULTIFORME [None]
  - LIVER DISORDER [None]
  - PRURITUS [None]
  - RASH [None]
  - TOXIC SKIN ERUPTION [None]
